FAERS Safety Report 10929753 (Version 1)
Quarter: 2015Q1

REPORT INFORMATION
  Report Type: Spontaneous
  Country: US (occurrence: US)
  Receive Date: 20150319
  Receipt Date: 20150319
  Transmission Date: 20150721
  Serious: Yes (Other)
  Sender: FDA-Public Use
  Company Number: US-PFIZER INC-2015094254

PATIENT
  Age: 64 Year
  Sex: Female

DRUGS (3)
  1. NITROGLYCERIN. [Suspect]
     Active Substance: NITROGLYCERIN
     Indication: MYOCARDIAL INFARCTION
     Dosage: UNK
  2. ASPIRIN. [Concomitant]
     Active Substance: ASPIRIN
  3. AMPYRA [Suspect]
     Active Substance: DALFAMPRIDINE
     Indication: MULTIPLE SCLEROSIS
     Dosage: 10 MG, 2X/DAY
     Dates: start: 20120515

REACTIONS (3)
  - Pneumonia [Unknown]
  - Myocardial infarction [Unknown]
  - Headache [Unknown]

NARRATIVE: CASE EVENT DATE: 201408
